FAERS Safety Report 18683839 (Version 1)
Quarter: 2020Q4

REPORT INFORMATION
  Report Type: Spontaneous
  Country: CA (occurrence: CA)
  Receive Date: 20201230
  Receipt Date: 20201230
  Transmission Date: 20210114
  Serious: Yes (Hospitalization, Other)
  Sender: FDA-Public Use
  Company Number: CA-MYLANLABS-2020M1105573

PATIENT
  Age: 39 Year
  Sex: Female

DRUGS (34)
  1. MORPHINE [Suspect]
     Active Substance: MORPHINE
     Dosage: 360 MILLIGRAM, GESTATIONAL AGE: 11 AND 15 WEEKS; SLOW RELEASE
     Route: 048
  2. METHADONE [Suspect]
     Active Substance: METHADONE HYDROCHLORIDE
     Indication: DRUG USE DISORDER
     Dosage: 60 MILLIGRAM, QD, GESTATIONAL AGE: 7 WEEKS
     Route: 065
  3. METHADONE [Suspect]
     Active Substance: METHADONE HYDROCHLORIDE
     Dosage: 28 MILLIGRAM, GESTATIONAL AGE: 28 WEEKS; OVERDOSE
     Route: 065
  4. METHADONE [Suspect]
     Active Substance: METHADONE HYDROCHLORIDE
     Dosage: 85 MILLIGRAM, DAY 7
     Route: 065
  5. HYDROMORPHONE [Suspect]
     Active Substance: HYDROMORPHONE
     Dosage: 10 MILLIGRAM
     Route: 042
  6. HYDROMORPHONE [Suspect]
     Active Substance: HYDROMORPHONE
     Dosage: 90 MILLIGRAM
     Route: 042
  7. METHADONE [Suspect]
     Active Substance: METHADONE HYDROCHLORIDE
     Dosage: 110 MILLIGRAM, GESTATIONAL AGE: 11 WEEKS
     Route: 065
  8. METHADONE [Suspect]
     Active Substance: METHADONE HYDROCHLORIDE
     Dosage: 125 MILLIGRAM, GESTATIONAL AGE: 15 WEEKS
     Route: 065
  9. METHADONE [Suspect]
     Active Substance: METHADONE HYDROCHLORIDE
     Dosage: 95 MILLIGRAM, GESTATIONAL AGE: 31 WEEKS
     Route: 065
  10. HYDROMORPHONE [Suspect]
     Active Substance: HYDROMORPHONE
     Indication: DRUG USE DISORDER
     Dosage: 75 MILLIGRAM, BID
     Route: 042
  11. MORPHINE [Suspect]
     Active Substance: MORPHINE
     Dosage: 300 MILLIGRAM, GESTATIONAL AGE: 19 WEEKS; SLOW RELEASE
     Route: 048
  12. METHADONE [Suspect]
     Active Substance: METHADONE HYDROCHLORIDE
     Dosage: 155 MILLIGRAM, GESTATIONAL AGE: 23 WEEKS
     Route: 065
  13. METHADONE [Suspect]
     Active Substance: METHADONE HYDROCHLORIDE
     Dosage: 40 MILLIGRAM, DAY 1
     Route: 065
  14. MORPHINE [Suspect]
     Active Substance: MORPHINE
     Dosage: 30 MILLIGRAM, GESTATIONAL AGE: 24 TO 29 WEEKS; SLOW RELEASE; OVERDOSES
     Route: 048
  15. MORPHINE [Suspect]
     Active Substance: MORPHINE
     Dosage: 600 MILLIGRAM, GESTATIONAL AGE: 32-37 WEEKS; SLOW RELEASE
     Route: 048
  16. METHADONE [Suspect]
     Active Substance: METHADONE HYDROCHLORIDE
     Dosage: 50 MILLIGRAM, DAY 2
     Route: 065
  17. METHADONE [Suspect]
     Active Substance: METHADONE HYDROCHLORIDE
     Dosage: 60 MILLIGRAM, DAY 3
     Route: 065
  18. MORPHINE [Suspect]
     Active Substance: MORPHINE
     Dosage: 100 MILLIGRAM, GESTATIONAL AGE: 30 WEEKS AND 31 WEEKS; 2 OVERDOSES; SLOW RELEASE
     Route: 048
  19. LEVAMISOLE [Suspect]
     Active Substance: LEVAMISOLE
     Indication: PRODUCT USED FOR UNKNOWN INDICATION
     Route: 065
  20. METHADONE [Suspect]
     Active Substance: METHADONE HYDROCHLORIDE
     Dosage: 90 MILLIGRAM, GESTATIONAL AGE: 9 WEEKS
     Route: 065
  21. METHADONE [Suspect]
     Active Substance: METHADONE HYDROCHLORIDE
     Dosage: 145 MILLIGRAM, GESTATIONAL AGE: 32-37 WEEKS
     Route: 065
  22. METHADONE [Suspect]
     Active Substance: METHADONE HYDROCHLORIDE
     Dosage: 70 MILLIGRAM, DAY 4- 6
     Route: 065
  23. FENTANYL. [Suspect]
     Active Substance: FENTANYL
     Indication: PRODUCT USED FOR UNKNOWN INDICATION
     Dosage: 1 GRAM, QD
     Route: 042
  24. METHADONE [Suspect]
     Active Substance: METHADONE HYDROCHLORIDE
     Dosage: 145 MILLIGRAM, GESTATIONAL AGE: 21 WEEKS
     Route: 065
  25. METHADONE [Suspect]
     Active Substance: METHADONE HYDROCHLORIDE
     Dosage: 65 MILLIGRAM, GESTATIONAL AGE: 29 WEEKS
     Route: 065
  26. METHADONE [Suspect]
     Active Substance: METHADONE HYDROCHLORIDE
     Dosage: 80 MILLIGRAM, GESTATIONAL AGE: 30 WEEKS; 2 OVERDOSES
     Route: 065
  27. NALOXONE [Suspect]
     Active Substance: NALOXONE
     Indication: DRUG THERAPY
     Route: 065
  28. MORPHINE [Suspect]
     Active Substance: MORPHINE
     Indication: DRUG USE DISORDER
     Dosage: 400 MILLIGRAM, GESTATIONAL AGE: 9 WEEKS; SLOW RELEASE
     Route: 048
  29. MORPHINE [Suspect]
     Active Substance: MORPHINE
     Dosage: UNK, Q2H 30-50MG ORALLY Q2 HR PRN
     Route: 048
  30. METHADONE [Suspect]
     Active Substance: METHADONE HYDROCHLORIDE
     Dosage: 135 MILLIGRAM, GESTATIONAL AGE: 19 WEEKS
     Route: 065
  31. HYDROMORPHONE [Suspect]
     Active Substance: HYDROMORPHONE
     Dosage: 10 MILLIGRAM
     Route: 030
  32. MORPHINE [Suspect]
     Active Substance: MORPHINE
     Dosage: 400 MILLIGRAM, GESTATIONAL AGE: 21 AND 23 WEEKS; SLOW RELEASE
     Route: 048
  33. METHADONE [Suspect]
     Active Substance: METHADONE HYDROCHLORIDE
     Dosage: 50 MILLIGRAM, GESTATIONAL AGE: 26 WEEKS
     Route: 065
  34. HYDROMORPHONE [Suspect]
     Active Substance: HYDROMORPHONE
     Dosage: 90 MILLIGRAM
     Route: 030

REACTIONS (2)
  - Maternal exposure during pregnancy [Recovered/Resolved]
  - Electrocardiogram QT prolonged [Unknown]
